FAERS Safety Report 12556268 (Version 1)
Quarter: 2016Q3

REPORT INFORMATION
  Report Type: Spontaneous
  Country: US (occurrence: None)
  Receive Date: 20160713
  Receipt Date: 20160713
  Transmission Date: 20161109
  Serious: Yes (Life-Threatening)
  Sender: FDA-Public Use
  Company Number: None

PATIENT
  Age: 56 Year
  Sex: Male
  Weight: 110.68 kg

DRUGS (1)
  1. LEMTRADA [Suspect]
     Active Substance: ALEMTUZUMAB
     Indication: MULTIPLE SCLEROSIS
     Route: 042
     Dates: start: 20160711, end: 20160711

REACTIONS (6)
  - Back pain [None]
  - Headache [None]
  - Chills [None]
  - Tachycardia [None]
  - Body temperature increased [None]
  - Hypertension [None]

NARRATIVE: CASE EVENT DATE: 20160711
